FAERS Safety Report 9033722 (Version 2)
Quarter: 2013Q4

REPORT INFORMATION
  Report Type: Spontaneous
  Country: US (occurrence: US)
  Receive Date: 20130128
  Receipt Date: 20131216
  Transmission Date: 20140711
  Serious: Yes (Other)
  Sender: FDA-Public Use
  Company Number: US-AMGEN-USASP2012074970

PATIENT
  Age: 62 Year
  Sex: Female

DRUGS (1)
  1. ENBREL [Suspect]
     Indication: RHEUMATOID ARTHRITIS
     Dosage: 50 MG, QWK
     Route: 065
     Dates: start: 20030501

REACTIONS (5)
  - Tooth extraction [Unknown]
  - Benign neoplasm [Recovered/Resolved]
  - Bone loss [Not Recovered/Not Resolved]
  - Impaired healing [Not Recovered/Not Resolved]
  - Cyst [Recovered/Resolved]
